FAERS Safety Report 5278365-0 (Version None)
Quarter: 2007Q1

REPORT INFORMATION
  Report Type: 
  Country: None (occurrence: None)
  Receive Date: 20070322
  Receipt Date: 20070315
  Transmission Date: 20070707
  Serious: Yes (Hospitalization)
  Sender: FDA-Public Use
  Company Number: 2007SP003939

PATIENT
  Age: 54 Year
  Sex: Male
  Weight: 74 kg

DRUGS (7)
  1. TEMODAL [Suspect]
     Indication: GLIOBLASTOMA MULTIFORME
     Dosage: SEE IMAGE
     Route: 048
     Dates: start: 20061002, end: 20061112
  2. TEMODAL [Suspect]
     Indication: GLIOBLASTOMA MULTIFORME
     Dosage: SEE IMAGE
     Route: 048
     Dates: start: 20061215, end: 20061219
  3. RADIOTHERAPY (CON.) [Concomitant]
  4. EXCEGRAN (CON.) [Concomitant]
  5. RINDERON (CON.) [Concomitant]
  6. GASTER (CON.) [Concomitant]
  7. PURSENNID (CON.) [Concomitant]

REACTIONS (2)
  - DISEASE PROGRESSION [None]
  - HYDROCEPHALUS [None]
